FAERS Safety Report 16393251 (Version 1)
Quarter: 2019Q2

REPORT INFORMATION
  Report Type: Spontaneous
  Country: BE (occurrence: BE)
  Receive Date: 20190605
  Receipt Date: 20190605
  Transmission Date: 20190711
  Serious: Yes (Other)
  Sender: FDA-Public Use
  Company Number: BE-SA-2019SA145140

PATIENT
  Sex: Female
  Weight: 82 kg

DRUGS (4)
  1. VITAMINE D [Concomitant]
     Active Substance: CHOLECALCIFEROL
     Indication: VITAMIN D DECREASED
     Dosage: 5000 UNITS
     Dates: start: 2015
  2. PANTOMED [PANTOPRAZOLE SODIUM SESQUIHYDRATE] [Concomitant]
     Dosage: 20 TO 40 MG FASTING FOR SEVERAL YEARS DEPENDING ON THE NEED
  3. LYSANXIA [Concomitant]
     Active Substance: PRAZEPAM
     Indication: GASTROINTESTINAL DISORDER
     Dosage: 5 DROPS IN THE MORNING OR AS NEEDED
     Dates: start: 2015
  4. CLEXANE [Suspect]
     Active Substance: ENOXAPARIN SODIUM
     Indication: LIMB IMMOBILISATION
     Dosage: 40 MG, QD
     Route: 065
     Dates: start: 20190425, end: 20190428

REACTIONS (5)
  - Dysgeusia [Recovering/Resolving]
  - Asthenia [Recovering/Resolving]
  - Dizziness [Recovering/Resolving]
  - Syncope [Recovering/Resolving]
  - Feeling hot [Recovering/Resolving]

NARRATIVE: CASE EVENT DATE: 20190425
